FAERS Safety Report 12165060 (Version 1)
Quarter: 2016Q1

REPORT INFORMATION
  Report Type: Report from Study
  Country: US (occurrence: US)
  Receive Date: 20160309
  Receipt Date: 20160309
  Transmission Date: 20160526
  Serious: No
  Sender: FDA-Public Use
  Company Number: US-ABBVIE-15P-163-1464911-00

PATIENT
  Age: 52 Year
  Sex: Female

DRUGS (3)
  1. NORETHINDRONE. [Concomitant]
     Active Substance: NORETHINDRONE
     Indication: PRODUCT USED FOR UNKNOWN INDICATION
     Dosage: MANUFACTURER NOT REPORTED.
     Route: 065
  2. IRON [Concomitant]
     Active Substance: IRON
     Indication: PRODUCT USED FOR UNKNOWN INDICATION
     Route: 065
  3. LUPRON DEPOT [Suspect]
     Active Substance: LEUPROLIDE ACETATE
     Indication: UTERINE LEIOMYOMA
     Route: 065
     Dates: start: 20150715

REACTIONS (12)
  - Dysmenorrhoea [Recovered/Resolved]
  - Haemorrhage [Recovered/Resolved]
  - Menstrual disorder [Unknown]
  - Feeling abnormal [Recovered/Resolved]
  - Myalgia [Unknown]
  - Decreased appetite [Unknown]
  - Irritability [Unknown]
  - Depression [Unknown]
  - Arthralgia [Unknown]
  - Hot flush [Unknown]
  - Anxiety [Unknown]
  - Mood altered [Unknown]

NARRATIVE: CASE EVENT DATE: 20150715
